FAERS Safety Report 9215330 (Version 1)
Quarter: 2013Q2

REPORT INFORMATION
  Report Type: Spontaneous
  Country: ES (occurrence: ES)
  Receive Date: 20130405
  Receipt Date: 20130405
  Transmission Date: 20140414
  Serious: Yes (Death, Hospitalization)
  Sender: FDA-Public Use
  Company Number: PHHY2013ES032244

PATIENT
  Age: 81 Year
  Sex: Female

DRUGS (10)
  1. SINTROM [Suspect]
     Indication: ATRIAL FIBRILLATION
     Dosage: UNK
     Route: 048
     Dates: start: 20130207
  2. DIGOXIN [Interacting]
     Indication: ATRIAL FIBRILLATION
     Dosage: 0.25 MG
     Route: 048
  3. CITALOPRAM [Interacting]
     Indication: DEPRESSION
     Dosage: 20 MG
     Route: 048
  4. METFORMINE [Concomitant]
     Indication: TYPE 2 DIABETES MELLITUS
     Dosage: 850 MG PER 24
     Route: 048
  5. BISOPROLOL [Concomitant]
     Indication: ATRIAL FIBRILLATION
     Dosage: 5 MG PER 24
     Route: 048
  6. AMERIDE [Concomitant]
     Indication: HYPERTENSION
     Dosage: 5 MG PER 24
     Route: 048
  7. OMEPRAZOLE [Concomitant]
     Dosage: 20 MG, PER 24
     Route: 048
  8. NITROPLAST [Concomitant]
     Dosage: 10 MG PER 24
  9. KEPPRA [Concomitant]
     Dosage: 500 MG PER 12 HOUR
  10. FUROSEMIDE [Concomitant]
     Dosage: 40 MG PER 24 HOUR

REACTIONS (1)
  - Abdominal wall haematoma [Fatal]
